FAERS Safety Report 8234365-X (Version None)
Quarter: 2012Q1

REPORT INFORMATION
  Report Type: 
  Country: None (occurrence: None)
  Receive Date: 20120326
  Receipt Date: 20120315
  Transmission Date: 20120608
  Serious: No
  Sender: FDA-Public Use
  Company Number: US-B.I. PHARMACEUTICALS,INC./RIDGEFIELD-2012-BP-04991BP

PATIENT
  Sex: Male

DRUGS (4)
  1. VENTOLIN DS [Concomitant]
     Indication: CHRONIC OBSTRUCTIVE PULMONARY DISEASE
  2. OXYGEN [Concomitant]
     Indication: DYSPNOEA
  3. JANOVIN(GENERIC WARFARIN) [Concomitant]
     Indication: HEART VALVE REPLACEMENT
  4. SPIRIVA [Suspect]
     Indication: CHRONIC OBSTRUCTIVE PULMONARY DISEASE
     Dosage: 18 MCG
     Route: 055
     Dates: start: 20120201

REACTIONS (5)
  - CHEST DISCOMFORT [None]
  - NON-CARDIAC CHEST PAIN [None]
  - DYSPNOEA [None]
  - CHEST PAIN [None]
  - MUSCULOSKELETAL PAIN [None]
